FAERS Safety Report 9860760 (Version 1)
Quarter: 2014Q1

REPORT INFORMATION
  Report Type: Spontaneous
  Country: CA (occurrence: CA)
  Receive Date: 20140202
  Receipt Date: 20140202
  Transmission Date: 20141002
  Serious: No
  Sender: FDA-Public Use
  Company Number: CA-ALLERGAN-1301041US

PATIENT
  Sex: Female

DRUGS (1)
  1. BOTOX [Suspect]
     Indication: CERVICOGENIC HEADACHE
     Dosage: 200 UNITS, SINGLE

REACTIONS (3)
  - Myosclerosis [Recovered/Resolved]
  - Sensory disturbance [Recovered/Resolved]
  - Myalgia [Recovered/Resolved]
